FAERS Safety Report 4899294-8 (Version None)
Quarter: 2006Q1

REPORT INFORMATION
  Report Type: 
  Country: None (occurrence: None)
  Receive Date: 20060131
  Receipt Date: 20060123
  Transmission Date: 20060701
  Serious: Yes (Other)
  Sender: FDA-Public Use
  Company Number: THQ2006A00088

PATIENT
  Age: 67 Year
  Sex: Female

DRUGS (2)
  1. LANSOPRAZOLE [Suspect]
     Indication: GASTROOESOPHAGEAL REFLUX DISEASE
     Dosage: 30 MG PER ORAL
     Route: 048
     Dates: start: 20051127, end: 20051211
  2. CIPROXIN (CIPROFLOXACIN) [Concomitant]

REACTIONS (12)
  - ABDOMINAL PAIN LOWER [None]
  - ARTHRALGIA [None]
  - CHEST PAIN [None]
  - DIARRHOEA [None]
  - ERYTHEMA [None]
  - GINGIVAL BLEEDING [None]
  - HEADACHE [None]
  - HYPERSENSITIVITY [None]
  - MALAISE [None]
  - NAUSEA [None]
  - SWELLING FACE [None]
  - VAGINAL HAEMORRHAGE [None]
